FAERS Safety Report 5027833-5 (Version None)
Quarter: 2006Q2

REPORT INFORMATION
  Report Type: 
  Country: None (occurrence: None)
  Receive Date: 20060612
  Receipt Date: 20060531
  Transmission Date: 20061013
  Serious: Yes (Hospitalization)
  Sender: FDA-Public Use
  Company Number: TCI2003A03067

PATIENT
  Age: 57 Year
  Sex: Male

DRUGS (5)
  1. PIOGLITAZONE HYDROCHLORIDE [Suspect]
     Indication: DIABETES MELLITUS NON-INSULIN-DEPENDENT
     Dosage: 15 MG (15 MG, 1 IN 1 D), PER ORAL; SEE IMAGE
     Route: 048
     Dates: start: 20021119, end: 20030810
  2. PIOGLITAZONE HYDROCHLORIDE [Suspect]
     Indication: DIABETES MELLITUS NON-INSULIN-DEPENDENT
     Dosage: 15 MG (15 MG, 1 IN 1 D), PER ORAL; SEE IMAGE
     Route: 048
     Dates: start: 20030822, end: 20060209
  3. AMARYL [Concomitant]
  4. LONGES (LISINOPRIL) [Concomitant]
  5. NORVASC [Concomitant]

REACTIONS (9)
  - CARDIOMEGALY [None]
  - HEADACHE [None]
  - MALAISE [None]
  - MUSCULAR WEAKNESS [None]
  - NASAL CONGESTION [None]
  - NASOPHARYNGITIS [None]
  - PHARYNGOLARYNGEAL PAIN [None]
  - PO2 DECREASED [None]
  - TONGUE PARALYSIS [None]
